FAERS Safety Report 26095095 (Version 1)
Quarter: 2025Q4

REPORT INFORMATION
  Report Type: Spontaneous
  Country: US (occurrence: US)
  Receive Date: 20251127
  Receipt Date: 20251127
  Transmission Date: 20260118
  Serious: Yes (Death, Hospitalization)
  Sender: NOSTRUM PHARMACEUTICALS LLC
  Company Number: US-NP-2025-89292-LIT-95

PATIENT
  Age: 88 Year
  Sex: Female

DRUGS (6)
  1. METFORMIN [Suspect]
     Active Substance: METFORMIN HYDROCHLORIDE
     Indication: Type 2 diabetes mellitus
     Route: 065
  2. OXYCODONE [Concomitant]
     Active Substance: OXYCODONE
     Route: 065
  3. FENTANYL [Concomitant]
     Active Substance: FENTANYL
     Indication: Pain
     Dosage: 12 MICROGRAM PER H TRANSDERMAL FILM EVERY 72 H
     Route: 062
  4. LOSARTAN [Concomitant]
     Active Substance: LOSARTAN
     Route: 065
  5. ROSUVASTATIN [Concomitant]
     Active Substance: ROSUVASTATIN
     Route: 065
  6. PREGABALIN [Concomitant]
     Active Substance: PREGABALIN
     Route: 065

REACTIONS (2)
  - Lactic acidosis [Fatal]
  - Encephalopathy [Fatal]
